FAERS Safety Report 5049241-3 (Version None)
Quarter: 2006Q3

REPORT INFORMATION
  Report Type: 
  Country: None (occurrence: None)
  Receive Date: 20060707
  Receipt Date: 20060624
  Transmission Date: 20061208
  Serious: Yes (Other)
  Sender: FDA-Public Use
  Company Number: 2006010297

PATIENT
  Sex: Male
  Weight: 95.2554 kg

DRUGS (2)
  1. UNISOM SLEEPGELS (DIPHENHYDRAMINE) [Suspect]
     Indication: INSOMNIA
     Dosage: 2 TO 3 LIQUIDCAPS EVERY NIGHT, ORAL
     Route: 048
     Dates: start: 20041001
  2. PAROXETINE HCL [Concomitant]

REACTIONS (6)
  - DEPRESSION [None]
  - DIZZINESS [None]
  - DRUG DEPENDENCE [None]
  - DRUG INEFFECTIVE [None]
  - INCORRECT DOSE ADMINISTERED [None]
  - SOMNOLENCE [None]
